FAERS Safety Report 9419770 (Version 1)
Quarter: 2013Q3

REPORT INFORMATION
  Report Type: Spontaneous
  Country: ES (occurrence: DE)
  Receive Date: 20130725
  Receipt Date: 20130725
  Transmission Date: 20140515
  Serious: Yes (Other)
  Sender: FDA-Public Use
  Company Number: DE-FRI-1000046983

PATIENT
  Age: 73 Year
  Sex: Male

DRUGS (3)
  1. ACLIDINIUM [Suspect]
     Indication: CHRONIC OBSTRUCTIVE PULMONARY DISEASE
     Dosage: 2 PUFFS
  2. EMSER SALZ [Suspect]
     Route: 055
  3. ONBREZ [Concomitant]
     Indication: CHRONIC OBSTRUCTIVE PULMONARY DISEASE
     Dosage: 1 PUFF 1/2 HOUR AFTER ACLIDINIUM

REACTIONS (1)
  - Bronchospasm [Unknown]
